FAERS Safety Report 4387000-5 (Version None)
Quarter: 2004Q2

REPORT INFORMATION
  Report Type: 
  Country: None (occurrence: None)
  Receive Date: 20040629
  Receipt Date: 20040629
  Transmission Date: 20050107
  Serious: Yes (Other)
  Sender: FDA-Public Use
  Company Number: None

PATIENT
  Age: 37 Year
  Sex: Male
  Weight: 66.2252 kg

DRUGS (1)
  1. VICODIN [Suspect]
     Indication: ANALGESIC EFFECT

REACTIONS (2)
  - DRUG EFFECT DECREASED [None]
  - MEDICATION ERROR [None]
